FAERS Safety Report 12934846 (Version 1)
Quarter: 2016Q4

REPORT INFORMATION
  Report Type: Spontaneous
  Country: US (occurrence: US)
  Receive Date: 20161112
  Receipt Date: 20161112
  Transmission Date: 20170207
  Serious: No
  Sender: FDA-Public Use
  Company Number: US-BRISTOL-MYERS SQUIBB COMPANY-BMS-2016-088315

PATIENT
  Sex: Male

DRUGS (1)
  1. OPDIVO [Suspect]
     Active Substance: NIVOLUMAB
     Indication: LUNG NEOPLASM MALIGNANT
     Route: 042

REACTIONS (14)
  - Feeling abnormal [Unknown]
  - Psychomotor hyperactivity [Unknown]
  - Nasal congestion [Unknown]
  - Peripheral swelling [Unknown]
  - Arthralgia [Unknown]
  - Weight increased [Unknown]
  - Chest pain [Recovering/Resolving]
  - Diarrhoea [Recovered/Resolved]
  - Productive cough [Unknown]
  - Contusion [Recovering/Resolving]
  - Dysgeusia [Recovering/Resolving]
  - Pain [Unknown]
  - Frequent bowel movements [Unknown]
  - Insomnia [Unknown]
